FAERS Safety Report 10056604 (Version 1)
Quarter: 2014Q2

REPORT INFORMATION
  Report Type: Spontaneous
  Country: US (occurrence: US)
  Receive Date: 20140403
  Receipt Date: 20140403
  Transmission Date: 20141212
  Serious: Yes (Other)
  Sender: FDA-Public Use
  Company Number: US-ACTELION-A-NJ2014-96622

PATIENT
  Age: 60 Year
  Sex: Female

DRUGS (1)
  1. TRACLEER [Suspect]
     Indication: PULMONARY HYPERTENSION
     Dosage: 62.5 MG BID
     Route: 048
     Dates: start: 20121211, end: 20140320

REACTIONS (4)
  - Concussion [Unknown]
  - Fall [Unknown]
  - Hepatic enzyme increased [Recovering/Resolving]
  - Fluid retention [Recovering/Resolving]
